FAERS Safety Report 15565795 (Version 1)
Quarter: 2018Q4

REPORT INFORMATION
  Report Type: Report from Study
  Country: US (occurrence: US)
  Receive Date: 20181030
  Receipt Date: 20181030
  Transmission Date: 20190205
  Serious: No
  Sender: FDA-Public Use
  Company Number: PHEH2018US045158

PATIENT
  Age: 59 Year
  Sex: Female

DRUGS (1)
  1. ENTRESTO [Suspect]
     Active Substance: SACUBITRIL\VALSARTAN
     Indication: PRODUCT USED FOR UNKNOWN INDICATION
     Dosage: UNK
     Route: 048
     Dates: start: 20180922, end: 20181017

REACTIONS (5)
  - Product prescribing error [Not Recovered/Not Resolved]
  - Insomnia [Not Recovered/Not Resolved]
  - Heart rate increased [Not Recovered/Not Resolved]
  - Headache [Not Recovered/Not Resolved]
  - Chest discomfort [Not Recovered/Not Resolved]

NARRATIVE: CASE EVENT DATE: 20181017
